FAERS Safety Report 5946693-9 (Version None)
Quarter: 2008Q4

REPORT INFORMATION
  Report Type: 
  Country: None (occurrence: None)
  Receive Date: 20081110
  Receipt Date: 20080908
  Transmission Date: 20090506
  Serious: No
  Sender: FDA-Public Use
  Company Number: A0746328A

PATIENT
  Age: 76 Year
  Sex: Female

DRUGS (4)
  1. ALTABAX [Suspect]
     Indication: WOUND
     Route: 061
     Dates: start: 20080829
  2. COUMADIN [Concomitant]
  3. DIURETIC [Concomitant]
  4. BLOOD PRESSURE MEDICATION [Concomitant]

REACTIONS (4)
  - APPLICATION SITE IRRITATION [None]
  - APPLICATION SITE PAIN [None]
  - DRUG ADMINISTRATION ERROR [None]
  - POOR QUALITY SLEEP [None]
